FAERS Safety Report 11167154 (Version 2)
Quarter: 2015Q3

REPORT INFORMATION
  Report Type: Spontaneous
  Country: US (occurrence: US)
  Receive Date: 20150605
  Receipt Date: 20150715
  Transmission Date: 20151125
  Serious: Yes (Other)
  Sender: FDA-Public Use
  Company Number: US-PFIZER INC-2015183336

PATIENT
  Age: 46 Year
  Sex: Female
  Weight: 98 kg

DRUGS (4)
  1. LYRICA [Suspect]
     Active Substance: PREGABALIN
     Dosage: 150 MG, 3X/DAY
  2. LYRICA [Suspect]
     Active Substance: PREGABALIN
     Dosage: 100 MG, 1X/DAY AT NIGHT
  3. HYDROCODONE/ACETAMINOPHEN [Suspect]
     Active Substance: ACETAMINOPHEN\HYDROCODONE
     Dosage: 10/325 FOUR TIMES A DAY
     Dates: start: 20150513, end: 201505
  4. LYRICA [Suspect]
     Active Substance: PREGABALIN
     Indication: FIBROMYALGIA
     Dosage: 50 MG, (ONCE AT NIGHT)
     Dates: start: 20150429

REACTIONS (4)
  - Pain in extremity [Unknown]
  - Musculoskeletal discomfort [Unknown]
  - Back pain [Unknown]
  - Hypoaesthesia [Unknown]
